FAERS Safety Report 10070433 (Version 2)
Quarter: 2014Q2

REPORT INFORMATION
  Report Type: Report from Study
  Country: US (occurrence: US)
  Receive Date: 20140410
  Receipt Date: 20140410
  Transmission Date: 20141212
  Serious: Yes (Hospitalization)
  Sender: FDA-Public Use
  Company Number: US-ROCHE-323299

PATIENT
  Age: 46 Year
  Sex: Female

DRUGS (15)
  1. TRASTUZUMAB [Suspect]
     Indication: BREAST CANCER
     Dosage: LOADING DOSE.
     Route: 042
     Dates: start: 20020723, end: 20020723
  2. TRASTUZUMAB [Suspect]
     Route: 042
  3. DOCETAXEL [Suspect]
     Indication: BREAST CANCER
     Route: 042
  4. CARBOPLATIN [Suspect]
     Indication: BREAST CANCER
     Route: 042
  5. TAGAMET [Concomitant]
     Route: 065
     Dates: start: 20020924, end: 20021105
  6. ALBUTEROL [Concomitant]
     Route: 065
  7. COUMADIN [Concomitant]
     Route: 065
  8. DEPAKOTE [Concomitant]
     Route: 065
  9. ZOLOFT [Concomitant]
     Route: 065
  10. TOPAMAX [Concomitant]
     Route: 065
  11. FOLIC ACID [Concomitant]
  12. VOLMAX [Concomitant]
     Route: 065
  13. DECADRON [Concomitant]
     Route: 065
     Dates: start: 20021104, end: 20021106
  14. BENADRYL (UNITED STATES) [Concomitant]
     Route: 065
     Dates: start: 20020924, end: 20021105
  15. PREDNISONE [Concomitant]
     Route: 065
     Dates: start: 20020211

REACTIONS (4)
  - Vertigo [Recovered/Resolved]
  - Trismus [Recovered/Resolved]
  - Device related infection [Recovered/Resolved]
  - Neutropenic sepsis [Recovered/Resolved]
